FAERS Safety Report 8266341-5 (Version None)
Quarter: 2012Q2

REPORT INFORMATION
  Report Type: 
  Country: None (occurrence: None)
  Receive Date: 20120406
  Receipt Date: 20120403
  Transmission Date: 20120825
  Serious: Yes (Other)
  Sender: FDA-Public Use
  Company Number: GB-PURDUE-GBR-2012-0010200

PATIENT
  Age: 74 Year
  Sex: Female

DRUGS (13)
  1. LACTULOSE [Concomitant]
     Dosage: 20 ML, BID
     Route: 048
  2. MORPHINE SULFATE [Suspect]
     Indication: PRODUCT USED FOR UNKNOWN INDICATION
     Dosage: 35 MG, BID
     Route: 048
  3. CALCIUM CARBONATE [Concomitant]
     Dosage: 1 DF, BID
     Route: 048
  4. IPRATROPIUM BROMIDE [Concomitant]
     Dosage: UNK, QID
     Route: 065
  5. ACETAMINOPHEN [Concomitant]
     Dosage: 1 G, QID
     Route: 048
  6. SENNA                              /00142201/ [Concomitant]
     Dosage: 14 MG, BID
     Route: 048
  7. MORPHINE SULFATE [Suspect]
     Dosage: 15 MG, BID
     Route: 048
  8. PROTELOS [Suspect]
     Indication: PRODUCT USED FOR UNKNOWN INDICATION
     Dosage: UNK
     Route: 048
     Dates: start: 20070504
  9. LANSOPRAZOLE [Suspect]
     Indication: PRODUCT USED FOR UNKNOWN INDICATION
     Route: 048
  10. FUROSEMIDE [Concomitant]
     Dosage: 40 MG, DAILY
     Route: 048
  11. PREDNISOLONE [Concomitant]
     Dosage: 1 G, UNK
     Route: 048
  12. BENDROFLUMETHIAZIDE [Concomitant]
     Dosage: 2.5 MG, DAILY
     Route: 065
  13. ALBUTEROL [Concomitant]
     Dosage: UNK, QID
     Route: 065

REACTIONS (2)
  - HYPONATRAEMIA [None]
  - CONFUSIONAL STATE [None]
